FAERS Safety Report 25500685 (Version 2)
Quarter: 2025Q3

REPORT INFORMATION
  Report Type: Spontaneous
  Country: KR (occurrence: KR)
  Receive Date: 20250701
  Receipt Date: 20250801
  Transmission Date: 20251020
  Serious: Yes (Hospitalization)
  Sender: KOWA PHARM
  Company Number: KR-KOWA-25JP001062

PATIENT
  Age: 70 Year
  Sex: Male

DRUGS (14)
  1. LIVALO [Suspect]
     Active Substance: PITAVASTATIN CALCIUM
     Indication: Myocardial infarction
     Dosage: 4 MG, QD
     Route: 048
     Dates: start: 20250325
  2. RITUXIMAB [Suspect]
     Active Substance: RITUXIMAB
     Indication: Product used for unknown indication
     Route: 042
     Dates: start: 20250327, end: 20250521
  3. BENDAMUSTINE [Suspect]
     Active Substance: BENDAMUSTINE
     Indication: Product used for unknown indication
     Route: 042
     Dates: start: 20250327, end: 20250522
  4. DIABEX [Concomitant]
     Active Substance: METFORMIN HYDROCHLORIDE
     Indication: Diabetes mellitus
     Route: 048
     Dates: start: 20250325
  5. TRUDAPA [Concomitant]
     Indication: Diabetes mellitus
     Route: 048
     Dates: start: 20250325
  6. GLUCOPHAGE [Concomitant]
     Active Substance: METFORMIN HYDROCHLORIDE
     Indication: Diabetes mellitus
     Route: 048
     Dates: start: 20250325
  7. PLAVITOR [Concomitant]
     Indication: Myocardial infarction
     Route: 048
     Dates: start: 20250325
  8. EZTIROL [Concomitant]
     Indication: Myocardial infarction
     Route: 048
     Dates: start: 20250325
  9. DIOVAN [Concomitant]
     Active Substance: VALSARTAN
     Indication: Hypertension
     Route: 048
     Dates: start: 20250325
  10. NEBIVOLOL HYDROCHLORIDE [Concomitant]
     Active Substance: NEBIVOLOL HYDROCHLORIDE
     Indication: Hypertension
     Route: 048
     Dates: start: 20250325
  11. ACYCLOVIR [Concomitant]
     Active Substance: ACYCLOVIR
     Indication: Infection prophylaxis
     Route: 048
     Dates: start: 20250327
  12. VIREAD [Concomitant]
     Active Substance: TENOFOVIR DISOPROXIL FUMARATE
     Indication: Hepatitis B core antibody positive
     Route: 048
     Dates: start: 20250327
  13. RUPAFIN [Concomitant]
     Active Substance: RUPATADINE FUMARATE
     Indication: Urticaria
     Route: 048
     Dates: start: 20250407
  14. LANSOPRAZOLE [Concomitant]
     Active Substance: LANSOPRAZOLE
     Indication: Gastritis prophylaxis
     Route: 048
     Dates: start: 20250407

REACTIONS (2)
  - Atypical pneumonia [Recovered/Resolved]
  - Off label use [Unknown]

NARRATIVE: CASE EVENT DATE: 20250618
